FAERS Safety Report 9191490 (Version 1)
Quarter: 2013Q1

REPORT INFORMATION
  Report Type: Spontaneous
  Country: IT (occurrence: IT)
  Receive Date: 20130326
  Receipt Date: 20130326
  Transmission Date: 20140127
  Serious: Yes (Other)
  Sender: FDA-Public Use
  Company Number: IT-TEVA-393233ISR

PATIENT
  Age: 74 Year
  Sex: Female

DRUGS (1)
  1. OXALIPLATINO [Suspect]
     Indication: COLON CANCER
     Dosage: 120 MG
     Route: 042
     Dates: start: 20121027, end: 20130226

REACTIONS (3)
  - Dyspnoea [Recovering/Resolving]
  - Tongue paralysis [Recovering/Resolving]
  - Muscle contractions involuntary [Recovering/Resolving]
